FAERS Safety Report 13908361 (Version 2)
Quarter: 2017Q3

REPORT INFORMATION
  Report Type: Spontaneous
  Country: JP (occurrence: JP)
  Receive Date: 20170826
  Receipt Date: 20170920
  Transmission Date: 20171127
  Serious: Yes (Hospitalization)
  Sender: FDA-Public Use
  Company Number: JP-AMGEN-JPNSP2017128856

PATIENT
  Age: 86 Year
  Sex: Female

DRUGS (2)
  1. NESP [Suspect]
     Active Substance: DARBEPOETIN ALFA
     Dosage: 60 MUG, QMO
     Route: 058
     Dates: start: 20170704
  2. NESP [Suspect]
     Active Substance: DARBEPOETIN ALFA
     Indication: PRODUCT USED FOR UNKNOWN INDICATION
     Dosage: 30 MUG, UNK
     Route: 058
     Dates: start: 20170530

REACTIONS (2)
  - Drug ineffective [Not Recovered/Not Resolved]
  - Haemoglobin decreased [Not Recovered/Not Resolved]

NARRATIVE: CASE EVENT DATE: 20170805
